FAERS Safety Report 9385650 (Version 3)
Quarter: 2013Q4

REPORT INFORMATION
  Report Type: Spontaneous
  Country: JP (occurrence: JP)
  Receive Date: 20130705
  Receipt Date: 20131029
  Transmission Date: 20140711
  Serious: Yes (Hospitalization)
  Sender: FDA-Public Use
  Company Number: JP-GLAXOSMITHKLINE-B0904362A

PATIENT
  Age: 42 Year
  Sex: Female

DRUGS (4)
  1. LAMICTAL [Suspect]
     Indication: EPILEPSY
     Dosage: 25MG PER DAY
     Route: 048
     Dates: start: 20130529, end: 20130617
  2. RELENZA [Suspect]
     Indication: PRODUCT USED FOR UNKNOWN INDICATION
     Route: 055
  3. PHENOBAL [Concomitant]
     Indication: EPILEPSY
     Route: 048
  4. E KEPPRA [Concomitant]
     Indication: EPILEPSY
     Dosage: 500MG TWICE PER DAY
     Route: 048
     Dates: start: 20121001, end: 20130628

REACTIONS (4)
  - Drug eruption [Recovering/Resolving]
  - Drug-induced liver injury [Recovering/Resolving]
  - Skin disorder [Recovered/Resolved]
  - Lymphadenopathy [Recovered/Resolved]
